FAERS Safety Report 5605697-6 (Version None)
Quarter: 2008Q1

REPORT INFORMATION
  Report Type: 
  Country: None (occurrence: None)
  Receive Date: 20080123
  Receipt Date: 20080115
  Transmission Date: 20080703
  Serious: Yes (Hospitalization)
  Sender: FDA-Public Use
  Company Number: 2008RL000015

PATIENT
  Age: 65 Year
  Sex: Male

DRUGS (3)
  1. LOVAZA [Suspect]
     Indication: ABDOMINAL SYMPTOM
     Dosage: 2 GM; QD; PO
     Route: 048
  2. TRAZODONE HCL [Suspect]
     Indication: DRUG USE FOR UNKNOWN INDICATION
     Dosage: 50 MG; QD
  3. WARFARIN SODIUM [Suspect]
     Indication: PULMONARY EMBOLISM
     Dosage: 5 MG; QD, 3.75 MG; QOD

REACTIONS (8)
  - ABDOMINAL SYMPTOM [None]
  - DRUG INTERACTION [None]
  - INSOMNIA [None]
  - INTERNATIONAL NORMALISED RATIO INCREASED [None]
  - OFF LABEL USE [None]
  - PROTHROMBIN TIME PROLONGED [None]
  - PULMONARY EMBOLISM [None]
  - UNEVALUABLE EVENT [None]
